FAERS Safety Report 23886896 (Version 2)
Quarter: 2024Q3

REPORT INFORMATION
  Report Type: Other
  Country: US (occurrence: US)
  Receive Date: 20240522
  Receipt Date: 20240705
  Transmission Date: 20241016
  Serious: No
  Sender: APOTEX
  Company Number: US-APOTEX-2024AP005582

PATIENT

DRUGS (1)
  1. VILAZODONE HYDROCHLORIDE [Suspect]
     Active Substance: VILAZODONE HYDROCHLORIDE
     Indication: Product used for unknown indication
     Dosage: 20 MILLIGRAM, BID
     Route: 065

REACTIONS (7)
  - Depression [Unknown]
  - Sleep disorder [Unknown]
  - Withdrawal syndrome [Unknown]
  - Product quality issue [Unknown]
  - Product substitution issue [Unknown]
  - Headache [Recovering/Resolving]
  - Irritability [Recovering/Resolving]
